FAERS Safety Report 7141573-8 (Version None)
Quarter: 2010Q4

REPORT INFORMATION
  Report Type: 
  Country: None (occurrence: None)
  Receive Date: 20101207
  Receipt Date: 20101202
  Transmission Date: 20110411
  Serious: Yes (Death, Other)
  Sender: FDA-Public Use
  Company Number: PHHY2010IE82059

PATIENT
  Age: 40 Year
  Sex: Male

DRUGS (8)
  1. CYCLOSPORINE [Suspect]
     Indication: HEART TRANSPLANT
     Dosage: UNK
  2. CYCLOSPORINE [Suspect]
     Dosage: 12.5 MG, QD
  3. AZATHIOPRINE [Suspect]
     Indication: HEART TRANSPLANT
  4. AZATHIOPRINE [Suspect]
     Indication: IMMUNOSUPPRESSION
  5. STEROIDS NOS [Suspect]
     Indication: HEART TRANSPLANT
  6. STEROIDS NOS [Suspect]
     Indication: IMMUNOSUPPRESSION
  7. ASPIRIN [Concomitant]
     Dosage: 75 MG/DAY
  8. STATIN [Concomitant]

REACTIONS (10)
  - ANGIOPATHY [None]
  - ARTERIOSCLEROSIS CORONARY ARTERY [None]
  - BLOOD CREATININE INCREASED [None]
  - CARDIAC ARREST [None]
  - HEART TRANSPLANT REJECTION [None]
  - HYPERTENSION [None]
  - LEFT VENTRICULAR DYSFUNCTION [None]
  - MYOSITIS [None]
  - RENAL IMPAIRMENT [None]
  - VASCULITIS NECROTISING [None]
